FAERS Safety Report 4655531-6 (Version None)
Quarter: 2005Q2

REPORT INFORMATION
  Report Type: 
  Country: None (occurrence: None)
  Receive Date: 20050505
  Receipt Date: 20050425
  Transmission Date: 20051028
  Serious: Yes (Life-Threatening, Other)
  Sender: FDA-Public Use
  Company Number: 2005028079

PATIENT
  Age: 58 Year
  Sex: Male
  Weight: 77.1115 kg

DRUGS (7)
  1. BEXTRA [Suspect]
     Indication: SPONDYLITIS
     Dosage: 20 MG (20 MG, 1 IN 1 D), ORAL
     Route: 048
     Dates: start: 20020101
  2. LIPITOR [Suspect]
     Indication: BLOOD CHOLESTEROL INCREASED
     Dosage: ORAL
     Route: 048
     Dates: end: 20020101
  3. CLONAZEPAM [Concomitant]
  4. ESCITALOPRAM OXALATE [Concomitant]
  5. LAMOTRIGINE [Concomitant]
  6. METHYLPHENIDATE HCL [Concomitant]
  7. EZETIMIBE (EZETIMIBE) [Concomitant]

REACTIONS (8)
  - ASTHENIA [None]
  - BLOOD CREATINE PHOSPHOKINASE INCREASED [None]
  - CONDITION AGGRAVATED [None]
  - FALL [None]
  - HEADACHE [None]
  - MYALGIA [None]
  - NECK PAIN [None]
  - SUICIDE ATTEMPT [None]
